FAERS Safety Report 14744865 (Version 3)
Quarter: 2018Q2

REPORT INFORMATION
  Report Type: Spontaneous
  Country: DE (occurrence: DE)
  Receive Date: 20180411
  Receipt Date: 20180502
  Transmission Date: 20180711
  Serious: Yes (Hospitalization, Other)
  Sender: FDA-Public Use
  Company Number: DE-CONCORDIA PHARMACEUTICALS INC.-E2B_00010580

PATIENT
  Sex: Male

DRUGS (13)
  1. METHOTREXATE. [Suspect]
     Active Substance: METHOTREXATE
     Indication: B-CELL LYMPHOMA
     Dosage: 0.15 G/M2, 1X BEFORE START CTX, 1X AFTER CTX
     Route: 042
     Dates: start: 20170815, end: 20180102
  2. ACETYLSALICYLIC ACID [Concomitant]
     Active Substance: ASPIRIN
     Dosage: 100 MG, QD
     Dates: start: 20170923
  3. PREDNISOLONE. [Suspect]
     Active Substance: PREDNISOLONE
     Indication: B-CELL LYMPHOMA
     Dosage: DATE LAST DOXORUBICINE GIVEN PRIOR TO SAE 01/DEC/2017 50 MG/M2, UNK (D2, IV)
     Route: 048
     Dates: start: 20170814, end: 20171201
  4. SIMVASTATIN. [Concomitant]
     Active Substance: SIMVASTATIN
     Dosage: 40 MG, 0-0-1/2
     Dates: start: 20171002
  5. DOXORUBICINE [Suspect]
     Active Substance: DOXORUBICIN
     Indication: B-CELL LYMPHOMA
     Dosage: DATE LAST DOXORUBICINE GIVEN PRIOR TO SAE 01/DEC/2017 50 MG/M2, UNK (D2, IV)
     Route: 042
     Dates: start: 20170905, end: 20171201
  6. PEGFILGRASTIM [Suspect]
     Active Substance: PEGFILGRASTIM
     Indication: B-CELL LYMPHOMA
     Dosage: 6 MG, UNK (D4)
     Route: 058
     Dates: start: 20170907, end: 20171204
  7. VALSARTAN HCT [Concomitant]
     Active Substance: HYDROCHLOROTHIAZIDE\VALSARTAN
     Indication: HYPERTENSION
     Dosage: 160/12.5MG, QD (1-0-0)
     Route: 048
  8. CYCLOPHOSPHAMIDE. [Suspect]
     Active Substance: CYCLOPHOSPHAMIDE
     Indication: B-CELL LYMPHOMA
     Dosage: DATE LAST CYCLOPHOSPHAMIDE GIVEN PRIOR TO SAE 01/DEC/2017 750 MG/M2, UNK, (D2, IV)
     Route: 042
     Dates: start: 20170905, end: 20171201
  9. METOPROLOLTARTRAT [Concomitant]
     Dosage: 47.5 MG, QD
     Route: 065
  10. LEUCOVORIN. [Suspect]
     Active Substance: LEUCOVORIN
     Indication: B-CELL LYMPHOMA
     Dosage: DEPENDING ON MTX LEVEL IN BLOOD ?30 MG, UNK (DEPENDING ON MTX LEVEL IN BLOOD, D1-D4)
     Route: 042
     Dates: start: 20170816, end: 20180106
  11. VINCRISTINE [Suspect]
     Active Substance: VINCRISTINE
     Indication: B-CELL LYMPHOMA
     Dosage: DATE LAST VINCRISTINE GIVEN PRIOR TO SAE 01/DEC/2017 3.7 MG, UNK (D2, IV)
     Route: 042
     Dates: start: 20170905, end: 20171201
  12. RITUXIMAB. [Suspect]
     Active Substance: RITUXIMAB
     Indication: B-CELL LYMPHOMA
     Dosage: DATE LAST VINCRISTINE GIVEN PRIOR TO SAE 01/DEC/2017 3.7 MG, UNK (D2, IV)
     Route: 042
     Dates: start: 20170814
  13. VALSARTAN. [Concomitant]
     Active Substance: VALSARTAN
     Dosage: 80 MG, QD
     Route: 065

REACTIONS (1)
  - Circulatory collapse [Recovered/Resolved]

NARRATIVE: CASE EVENT DATE: 20180223
